FAERS Safety Report 4767521-3 (Version None)
Quarter: 2005Q3

REPORT INFORMATION
  Report Type: 
  Country: None (occurrence: None)
  Receive Date: 20050909
  Receipt Date: 20050829
  Transmission Date: 20060218
  Serious: Yes (Hospitalization, Other)
  Sender: FDA-Public Use
  Company Number: 200513355BCC

PATIENT
  Age: 76 Year
  Sex: Female
  Weight: 63.5036 kg

DRUGS (4)
  1. ASPIRIN [Suspect]
     Indication: CEREBROVASCULAR ACCIDENT PROPHYLAXIS
     Dosage: 325 MG, HS, ORAL
     Route: 048
     Dates: start: 20030101, end: 20050101
  2. ASPIRIN [Suspect]
     Indication: MYOCARDIAL INFARCTION
     Dosage: 325 MG, HS, ORAL
     Route: 048
     Dates: start: 20030101, end: 20050101
  3. ASPIRIN [Suspect]
     Indication: PROPHYLAXIS
     Dosage: 325 MG, HS, ORAL
     Route: 048
     Dates: start: 20030101, end: 20050101
  4. PREMARIN [Concomitant]

REACTIONS (2)
  - GASTRIC ULCER HAEMORRHAGE [None]
  - PNEUMONIA [None]
